FAERS Safety Report 7396458-9 (Version None)
Quarter: 2011Q2

REPORT INFORMATION
  Report Type: 
  Country: None (occurrence: None)
  Receive Date: 20110406
  Receipt Date: 20101208
  Transmission Date: 20111010
  Serious: Yes (Other)
  Sender: FDA-Public Use
  Company Number: US-BAYER-201042016NA

PATIENT
  Sex: Female

DRUGS (2)
  1. BETASERON [Suspect]
     Dosage: 6 MIU, QOD
     Route: 058
     Dates: start: 20101020, end: 20101201
  2. BETASERON [Suspect]
     Indication: MULTIPLE SCLEROSIS
     Route: 058
     Dates: start: 20101003, end: 20101013

REACTIONS (11)
  - MIGRAINE [None]
  - FATIGUE [None]
  - ABNORMAL BEHAVIOUR [None]
  - EMOTIONAL DISORDER [None]
  - DYSPNOEA [None]
  - HYPOAESTHESIA [None]
  - DIZZINESS [None]
  - CONVULSION [None]
  - DEPRESSED MOOD [None]
  - INSOMNIA [None]
  - TREMOR [None]
